FAERS Safety Report 9596720 (Version 2)
Quarter: 2013Q4

REPORT INFORMATION
  Report Type: Spontaneous
  Country: FR (occurrence: FR)
  Receive Date: 20131004
  Receipt Date: 20131022
  Transmission Date: 20140711
  Serious: Yes (Other)
  Sender: FDA-Public Use
  Company Number: FR-GLAXOSMITHKLINE-B0925752A

PATIENT
  Age: 47 Year
  Sex: Female

DRUGS (12)
  1. ZOPHREN [Suspect]
     Indication: PREMEDICATION
     Dosage: 4MG THREE TIMES PER DAY
     Route: 048
     Dates: start: 20130805, end: 20130805
  2. ENDOXAN [Suspect]
     Indication: SYSTEMIC LUPUS ERYTHEMATOSUS
     Dosage: 1100MG CYCLIC
     Route: 042
     Dates: start: 20130805, end: 20130805
  3. UROMITEXAN [Suspect]
     Indication: PREMEDICATION
     Dosage: 870MG CYCLIC
     Route: 042
     Dates: start: 20130805, end: 20130805
  4. XANAX [Concomitant]
  5. APROVEL [Concomitant]
     Dosage: 150MG PER DAY
  6. CELLCEPT [Concomitant]
     Dosage: 1G PER DAY
  7. FORLAX [Concomitant]
  8. FUROSEMIDE [Concomitant]
     Dosage: 100MG PER DAY
  9. IMOVANE [Concomitant]
  10. INIPOMP [Concomitant]
  11. LYRICA [Concomitant]
     Dosage: 100MG PER DAY
  12. SOLUPRED [Concomitant]
     Dosage: 40MG PER DAY

REACTIONS (7)
  - Hypotension [Recovered/Resolved]
  - Hypoxia [Recovered/Resolved]
  - Pyrexia [Recovered/Resolved]
  - Oxygen saturation decreased [Recovered/Resolved]
  - Bronchial obstruction [Recovered/Resolved]
  - Chills [Recovered/Resolved]
  - Cyanosis [Recovered/Resolved]
